FAERS Safety Report 24359192 (Version 4)
Quarter: 2024Q4

REPORT INFORMATION
  Report Type: Spontaneous
  Country: US (occurrence: US)
  Receive Date: 20240924
  Receipt Date: 20241101
  Transmission Date: 20250114
  Serious: No
  Sender: NOVARTIS
  Company Number: US-002147023-NVSC2024US188662

PATIENT

DRUGS (1)
  1. ENTRESTO [Suspect]
     Active Substance: SACUBITRIL\VALSARTAN
     Indication: Product used for unknown indication
     Dosage: UNK
     Route: 065

REACTIONS (8)
  - Blood pressure abnormal [Unknown]
  - Peripheral swelling [Unknown]
  - Dizziness [Unknown]
  - Fatigue [Unknown]
  - Hypertension [Unknown]
  - Hyperhidrosis [Unknown]
  - Product dose omission issue [Unknown]
  - Incorrect dosage administered [Unknown]
